FAERS Safety Report 9148765 (Version 1)
Quarter: 2013Q1

REPORT INFORMATION
  Report Type: Spontaneous
  Country: US (occurrence: US)
  Receive Date: 20130308
  Receipt Date: 20130308
  Transmission Date: 20140127
  Serious: No
  Sender: FDA-Public Use
  Company Number: US-JNJFOC-20130215807

PATIENT
  Age: 41 Year
  Sex: Female
  Weight: 61.69 kg

DRUGS (6)
  1. DURAGESIC [Suspect]
     Indication: PAIN
     Route: 062
     Dates: start: 20120221
  2. DURAGESIC [Suspect]
     Indication: PAIN
     Route: 062
     Dates: start: 201211, end: 20130219
  3. TOPIRAMATE [Concomitant]
     Indication: ANALGESIC THERAPY
     Route: 048
  4. WELLBUTRIN [Concomitant]
     Indication: POST-TRAUMATIC STRESS DISORDER
     Route: 048
  5. OXYCODONE [Concomitant]
     Indication: BREAKTHROUGH PAIN
     Route: 048
  6. KLONOPIN [Concomitant]
     Indication: POST-TRAUMATIC STRESS DISORDER
     Route: 048

REACTIONS (6)
  - Withdrawal syndrome [Recovered/Resolved]
  - Drug ineffective [Recovered/Resolved]
  - Product quality issue [Unknown]
  - Product quality issue [Unknown]
  - Product quality issue [Unknown]
  - Wrong technique in drug usage process [Unknown]
